FAERS Safety Report 6742065-8 (Version None)
Quarter: 2010Q2

REPORT INFORMATION
  Report Type: 
  Country: None (occurrence: None)
  Receive Date: 20100526
  Receipt Date: 20100524
  Transmission Date: 20101027
  Serious: Yes (Congenital Anomaly, Other)
  Sender: FDA-Public Use
  Company Number: IT-TEVA-235812ISR

PATIENT
  Age: 7 Year
  Sex: Male
  Weight: 16.5 kg

DRUGS (2)
  1. CARBAMAZEPINE [Suspect]
     Route: 064
  2. PHENOBARBITAL [Suspect]
     Route: 064

REACTIONS (2)
  - GROWTH RETARDATION [None]
  - HYPOSPADIAS [None]
